FAERS Safety Report 22205592 (Version 1)
Quarter: 2023Q2

REPORT INFORMATION
  Report Type: Spontaneous
  Country: CN (occurrence: CN)
  Receive Date: 20230413
  Receipt Date: 20230413
  Transmission Date: 20230722
  Serious: Yes (Hospitalization)
  Sender: FDA-Public Use
  Company Number: CN-002147023-NVSC2023CN082747

PATIENT
  Age: 49 Year
  Sex: Female
  Weight: 50 kg

DRUGS (1)
  1. SACUBITRIL\VALSARTAN [Suspect]
     Active Substance: SACUBITRIL\VALSARTAN
     Indication: Hypertension
     Dosage: 200 MG, QD
     Route: 048
     Dates: start: 20230101, end: 20230324

REACTIONS (1)
  - Blood potassium increased [Unknown]

NARRATIVE: CASE EVENT DATE: 20230324
